FAERS Safety Report 22259185 (Version 1)
Quarter: 2023Q2

REPORT INFORMATION
  Report Type: Spontaneous
  Country: JE (occurrence: None)
  Receive Date: 20230427
  Receipt Date: 20230427
  Transmission Date: 20230721
  Serious: Yes (Death, Hospitalization, Other)
  Sender: FDA-Public Use
  Company Number: JE-ETHYPHARM-2023000892

PATIENT
  Age: 51 Year
  Sex: Male

DRUGS (4)
  1. BUPRENORPHINE HYDROCHLORIDE [Suspect]
     Active Substance: BUPRENORPHINE HYDROCHLORIDE
     Indication: Product used for unknown indication
  2. METHADONE [Suspect]
     Active Substance: METHADONE HYDROCHLORIDE
     Indication: Product used for unknown indication
     Dosage: TAKING OPIATES DAILY
  3. OXYCONTIN [Suspect]
     Active Substance: OXYCODONE HYDROCHLORIDE
     Indication: Product used for unknown indication
     Dosage: TAKING OPIATES DAILY
  4. HEROIN [Suspect]
     Active Substance: DIAMORPHINE

REACTIONS (7)
  - Cardiac arrest [Fatal]
  - Deep vein thrombosis [Unknown]
  - Pleural effusion [Unknown]
  - Pericarditis infective [Unknown]
  - Cardiac failure [Unknown]
  - Intentional product use issue [Unknown]
  - Drug abuse [Unknown]
